FAERS Safety Report 23471992 (Version 3)
Quarter: 2024Q2

REPORT INFORMATION
  Report Type: Report from Study
  Country: US (occurrence: US)
  Receive Date: 20240202
  Receipt Date: 20240401
  Transmission Date: 20240715
  Serious: Yes (Hospitalization, Other)
  Sender: FDA-Public Use
  Company Number: US-UCBSA-2023061415

PATIENT
  Age: 73 Year
  Sex: Female
  Weight: 60.78 kg

DRUGS (3)
  1. LACOSAMIDE [Suspect]
     Active Substance: LACOSAMIDE
     Indication: Seizure
     Dosage: 150 MILLIGRAM, 2X/DAY (BID)
     Route: 048
     Dates: start: 2016
  2. PRINIVIL [Concomitant]
     Active Substance: LISINOPRIL
     Indication: Product used for unknown indication
     Dosage: 5 MILLIGRAM DAILY
     Route: 048
  3. ZESTRIL [Concomitant]
     Active Substance: LISINOPRIL
     Indication: Product used for unknown indication

REACTIONS (4)
  - Retrograde amnesia [Recovered/Resolved]
  - Sinus node dysfunction [Recovered/Resolved]
  - Sinus bradycardia [Recovered/Resolved]
  - Cardiac pacemaker insertion [Recovered/Resolved]

NARRATIVE: CASE EVENT DATE: 20231216
